FAERS Safety Report 7516629 (Version 2)
Quarter: 2013Q2

REPORT INFORMATION
  Report Type: Spontaneous
  Country: US (occurrence: US)
  Receive Date: 20100731
  Receipt Date: 20130530
  Transmission Date: 20140414
  Serious: Yes (Other)
  Sender: FDA-Public Use
  Company Number: US-PFIZER INC-2006033469

PATIENT
  Sex: Male
  Weight: 97.52 kg

DRUGS (11)
  1. MOTRIN [Suspect]
     Dosage: UNKNOWN
  2. NEURONTIN [Suspect]
     Indication: CONVULSION
     Dosage: 600 MG, 4X/DAY
     Route: 065
  3. NEURONTIN [Suspect]
     Dosage: 3600 MG, A DAY
     Dates: start: 200807
  4. NEURONTIN [Suspect]
     Dosage: 3000 MG, A DAY
     Dates: start: 200808
  5. TEGRETOL [Suspect]
     Dosage: UNKNOWN
     Route: 065
  6. CLONAZEPAM [Suspect]
     Dosage: UNKNOWN
  7. PREVACID [Suspect]
     Dosage: UNKNOWN
  8. VICOPROFEN [Suspect]
     Dosage: UNKNOWN
  9. RITALIN [Concomitant]
     Route: 065
  10. TRILEPTAL [Concomitant]
     Route: 065
  11. TEMAZEPAM [Concomitant]
     Route: 065

REACTIONS (7)
  - Gastrointestinal haemorrhage [Unknown]
  - Constipation [Not Recovered/Not Resolved]
  - Abdominal pain upper [Not Recovered/Not Resolved]
  - Flatulence [Not Recovered/Not Resolved]
  - Functional gastrointestinal disorder [Not Recovered/Not Resolved]
  - Weight decreased [Unknown]
  - Somnolence [Not Recovered/Not Resolved]
